FAERS Safety Report 5186348-4 (Version None)
Quarter: 2006Q4

REPORT INFORMATION
  Report Type: 
  Country: None (occurrence: None)
  Receive Date: 20061213
  Receipt Date: 20061130
  Transmission Date: 20070319
  Serious: Yes (Other)
  Sender: FDA-Public Use
  Company Number: 2006136327

PATIENT
  Sex: Female

DRUGS (1)
  1. XALATAN [Suspect]
     Indication: GLAUCOMA
     Dosage: (DAILY: EVERY DAY), OPHTHALMIC
     Route: 047

REACTIONS (3)
  - ASTHMA [None]
  - CARDIAC FAILURE [None]
  - CONDITION AGGRAVATED [None]
